FAERS Safety Report 15215068 (Version 1)
Quarter: 2018Q3

REPORT INFORMATION
  Report Type: Spontaneous
  Country: US (occurrence: US)
  Receive Date: 20180730
  Receipt Date: 20180730
  Transmission Date: 20181010
  Serious: No
  Sender: FDA-Public Use
  Company Number: US-ELI_LILLY_AND_COMPANY-US201807012998

PATIENT
  Age: 59 Year
  Sex: Female

DRUGS (1)
  1. TRULICITY [Suspect]
     Active Substance: DULAGLUTIDE
     Indication: PRODUCT USED FOR UNKNOWN INDICATION
     Dosage: UNK, UNKNOWN
     Route: 065
     Dates: start: 20180725

REACTIONS (5)
  - Somnolence [Unknown]
  - Injection site pain [Unknown]
  - Injection site swelling [Unknown]
  - Fatigue [Unknown]
  - Injection site irritation [Unknown]

NARRATIVE: CASE EVENT DATE: 20180725
